FAERS Safety Report 9241476 (Version 1)
Quarter: 2013Q2

REPORT INFORMATION
  Report Type: Spontaneous
  Country: US (occurrence: US)
  Receive Date: 20130419
  Receipt Date: 20130419
  Transmission Date: 20140414
  Serious: No
  Sender: FDA-Public Use
  Company Number: US-TEVA-399080USA

PATIENT
  Age: 59 Year
  Sex: Female
  Weight: 52.66 kg

DRUGS (7)
  1. AZILECT [Suspect]
     Indication: PARKINSON^S DISEASE
     Dates: start: 20110601, end: 20120301
  2. PROGESTERONE [Concomitant]
     Indication: HORMONE REPLACEMENT THERAPY
     Dosage: 100 MILLIGRAM DAILY; 16 DAYS PER MONTH
     Route: 048
  3. ESTROGEN NOS [Concomitant]
     Indication: HORMONE REPLACEMENT THERAPY
     Dosage: 1 MILLIGRAM DAILY; 16 DAYS PER MONTH
     Route: 048
  4. BACLOFEN [Concomitant]
     Dates: start: 20120301
  5. CARBODOPA LEVO [Concomitant]
     Indication: PARKINSON^S DISEASE
     Dosage: 25/100
     Route: 048
  6. AMANTADINE [Concomitant]
     Indication: PARKINSON^S DISEASE
     Dosage: 100 MILLIGRAM DAILY;
     Route: 048
     Dates: start: 20120301
  7. NEUPRO PATCH [Concomitant]
     Indication: PARKINSON^S DISEASE
     Dates: start: 20120301

REACTIONS (4)
  - Muscle spasms [Recovered/Resolved]
  - Muscle spasms [Recovered/Resolved]
  - Dyskinesia [Recovered/Resolved]
  - Weight decreased [Recovered/Resolved]
